FAERS Safety Report 5391035-3 (Version None)
Quarter: 2007Q3

REPORT INFORMATION
  Report Type: 
  Country: None (occurrence: None)
  Receive Date: 20070718
  Receipt Date: 20070703
  Transmission Date: 20080115
  Serious: Yes (Hospitalization)
  Sender: FDA-Public Use
  Company Number: TKT01200700160

PATIENT
  Age: 8 Year
  Sex: Male
  Weight: 22.7 kg

DRUGS (3)
  1. IDURSULFASE (IDURSULFASE) (0.5 MILLIGRAM(S) /KILOGRAM, CONCENTRATE FOR [Suspect]
     Indication: MUCOPOLYSACCHARIDOSIS II
     Dosage: (11.5 MG,1 IN 1 WK),INTRAVENOUS DRIP
     Route: 041
     Dates: start: 20070226, end: 20070622
  2. NASONEX [Concomitant]
  3. SINGULAIR [Concomitant]

REACTIONS (8)
  - BLOOD POTASSIUM DECREASED [None]
  - BLOOD SODIUM DECREASED [None]
  - CATHETER RELATED INFECTION [None]
  - DECREASED APPETITE [None]
  - DIARRHOEA [None]
  - DYSGEUSIA [None]
  - FATIGUE [None]
  - IRON DEFICIENCY ANAEMIA [None]
